FAERS Safety Report 5582867-7 (Version None)
Quarter: 2008Q1

REPORT INFORMATION
  Report Type: 
  Country: None (occurrence: None)
  Receive Date: 20080107
  Receipt Date: 20071227
  Transmission Date: 20080703
  Serious: Yes (Other)
  Sender: FDA-Public Use
  Company Number: US-ROCHE-516238

PATIENT
  Age: 54 Year
  Sex: Female

DRUGS (3)
  1. PEG-INTERFERON A-2A (RO 25-8310) [Suspect]
     Route: 065
     Dates: start: 20070516, end: 20071219
  2. RIBAVIRIN [Suspect]
     Route: 065
     Dates: start: 20070516, end: 20071219
  3. INSULIN [Concomitant]
     Dosage: REPORTED AS ^ATLANTIS INSULTIN^
     Route: 058

REACTIONS (5)
  - DEPRESSED MOOD [None]
  - HAEMATOCHEZIA [None]
  - HOMICIDAL IDEATION [None]
  - NEOPLASM [None]
  - SUICIDAL IDEATION [None]
